FAERS Safety Report 17853884 (Version 1)
Quarter: 2020Q2

REPORT INFORMATION
  Report Type: Spontaneous
  Country: ES (occurrence: ES)
  Receive Date: 20200603
  Receipt Date: 20200603
  Transmission Date: 20200714
  Serious: Yes (Hospitalization)
  Sender: FDA-Public Use
  Company Number: ES-SUN PHARMACEUTICAL INDUSTRIES LTD-2020RR-249087

PATIENT
  Age: 77 Year
  Sex: Female

DRUGS (5)
  1. ALLOPURINOL. [Suspect]
     Active Substance: ALLOPURINOL
     Indication: GOUT
     Dosage: 200 MILLIGRAM, DAILY
     Route: 048
     Dates: start: 20190507, end: 20190801
  2. FUROSEMIDA (1615A) [Concomitant]
     Active Substance: FUROSEMIDE
     Indication: CARDIAC FAILURE
     Dosage: 120 MILLIGRAM, DAILY
     Route: 048
     Dates: start: 20190114
  3. ESPIRONOLACTONA (326A) [Concomitant]
     Active Substance: SPIRONOLACTONE
     Indication: CARDIAC FAILURE
     Dosage: 150 MILLIGRAM, DAILY
     Route: 048
     Dates: start: 20151203
  4. ACENOCUMAROL (220A) [Concomitant]
     Active Substance: ACENOCOUMAROL
     Indication: CARDIAC VALVE PROSTHESIS USER
     Dosage: UNK
     Route: 048
  5. DENOSUMAB (8418A) [Concomitant]
     Active Substance: DENOSUMAB
     Indication: OSTEOPOROSIS
     Dosage: 120 MILLIGRAM, ANNUALLY
     Route: 058
     Dates: start: 20181130

REACTIONS (1)
  - Cutaneous vasculitis [Recovered/Resolved]

NARRATIVE: CASE EVENT DATE: 20190718
